FAERS Safety Report 7344940-2 (Version None)
Quarter: 2011Q1

REPORT INFORMATION
  Report Type: 
  Country: None (occurrence: None)
  Receive Date: 20110310
  Receipt Date: 20110224
  Transmission Date: 20110831
  Serious: Yes (Other)
  Sender: FDA-Public Use
  Company Number: CA-JNJFOC-20100608515

PATIENT
  Sex: Male
  Weight: 80 kg

DRUGS (12)
  1. ASACOL [Concomitant]
     Indication: ILL-DEFINED DISORDER
  2. SYMBICORT [Concomitant]
     Indication: ILL-DEFINED DISORDER
     Dosage: 2 PUFFS BID
  3. CLONAZEPAM [Concomitant]
     Indication: ILL-DEFINED DISORDER
  4. REMICADE [Suspect]
     Indication: COLITIS ULCERATIVE
     Dosage: 400 MG ON THIRD LOADING DOSE
     Route: 042
  5. LIPITOR [Concomitant]
     Indication: ILL-DEFINED DISORDER
  6. CHOLESTYRAMINE [Concomitant]
     Indication: ILL-DEFINED DISORDER
  7. IMURAN [Concomitant]
     Indication: ILL-DEFINED DISORDER
  8. DIOVAN [Concomitant]
     Indication: ILL-DEFINED DISORDER
  9. TYLENOL [Concomitant]
     Indication: ILL-DEFINED DISORDER
  10. ASPIRIN [Concomitant]
     Indication: ILL-DEFINED DISORDER
  11. INSULIN ISOPHANE [Concomitant]
     Indication: ILL-DEFINED DISORDER
  12. HUMALOG [Concomitant]
     Indication: ILL-DEFINED DISORDER

REACTIONS (4)
  - COMPRESSION FRACTURE [None]
  - CHRONIC OBSTRUCTIVE PULMONARY DISEASE [None]
  - FALL [None]
  - DRUG ADMINISTRATION ERROR [None]
